FAERS Safety Report 5496424-4 (Version None)
Quarter: 2007Q3

REPORT INFORMATION
  Report Type: 
  Country: None (occurrence: None)
  Receive Date: 20070924
  Receipt Date: 20070924
  Transmission Date: 20080115
  Serious: Yes (Other)
  Sender: FDA-Public Use
  Company Number: None

PATIENT
  Age: 33 Year
  Sex: Female
  Weight: 63.5036 kg

DRUGS (1)
  1. MIRENA [Suspect]

REACTIONS (4)
  - BREAST DISORDER [None]
  - DEPRESSED MOOD [None]
  - INSOMNIA [None]
  - URINARY TRACT INFECTION [None]
